FAERS Safety Report 24039213 (Version 1)
Quarter: 2024Q3

REPORT INFORMATION
  Report Type: Spontaneous
  Country: FR (occurrence: FR)
  Receive Date: 20240702
  Receipt Date: 20240702
  Transmission Date: 20241017
  Serious: Yes (Life-Threatening, Other)
  Sender: CELLTRION
  Company Number: FR-CELLTRION INC.-2024FR015631

PATIENT

DRUGS (4)
  1. RITUXIMAB [Interacting]
     Active Substance: RITUXIMAB
     Indication: Follicular lymphoma stage IV
     Dosage: 1400 MILLIGRAM, 1 TOTAL
     Route: 058
     Dates: start: 20240117, end: 20240117
  2. VINCRISTINE [Interacting]
     Active Substance: VINCRISTINE
     Indication: Follicular lymphoma stage IV
     Dosage: 2 MG, 1 TOTAL
     Route: 042
     Dates: start: 20240117, end: 20240117
  3. PREDNISONE [Interacting]
     Active Substance: PREDNISONE
     Indication: Follicular lymphoma stage IV
     Dosage: 40 MILLIGRAM, QD
     Route: 048
     Dates: start: 20240117, end: 20240121
  4. CYCLOPHOSPHAMIDE [Interacting]
     Active Substance: CYCLOPHOSPHAMIDE
     Indication: Follicular lymphoma stage IV
     Dosage: 1250 MG, 1 TOTAL
     Route: 042
     Dates: start: 20240117, end: 20240117

REACTIONS (2)
  - Sepsis [Recovered/Resolved]
  - Drug interaction [Recovered/Resolved]

NARRATIVE: CASE EVENT DATE: 20240124
